FAERS Safety Report 10871044 (Version 1)
Quarter: 2015Q1

REPORT INFORMATION
  Report Type: Spontaneous
  Country: AU (occurrence: AU)
  Receive Date: 20150226
  Receipt Date: 20150226
  Transmission Date: 20150721
  Serious: Yes (Other)
  Sender: FDA-Public Use
  Company Number: AU-EISAI MEDICAL RESEARCH-EC-2015-003039

PATIENT
  Age: 3 Decade
  Sex: Female

DRUGS (5)
  1. CARBAMAZEPINE CR [Concomitant]
     Indication: GENERALISED TONIC-CLONIC SEIZURE
     Dosage: 900 MG
     Route: 048
  2. ZONISAMIDE. [Concomitant]
     Active Substance: ZONISAMIDE
     Indication: GENERALISED TONIC-CLONIC SEIZURE
     Dosage: 400 MG
     Route: 048
  3. TOPIRAMATE. [Concomitant]
     Active Substance: TOPIRAMATE
     Indication: GENERALISED TONIC-CLONIC SEIZURE
     Dosage: 25 MG
     Route: 048
     Dates: start: 20141222, end: 20150104
  4. FYCOMPA [Suspect]
     Active Substance: PERAMPANEL
     Indication: GENERALISED TONIC-CLONIC SEIZURE
     Route: 048
     Dates: start: 20141201, end: 20141212
  5. TOPIRAMATE. [Concomitant]
     Active Substance: TOPIRAMATE
     Dosage: 50 MG
     Route: 048
     Dates: start: 20150105

REACTIONS (1)
  - Homicidal ideation [Recovered/Resolved]

NARRATIVE: CASE EVENT DATE: 20141207
